FAERS Safety Report 4286870-9 (Version None)
Quarter: 2004Q1

REPORT INFORMATION
  Report Type: 
  Country: None (occurrence: None)
  Receive Date: 20040128
  Receipt Date: 20040128
  Transmission Date: 20041129
  Serious: Yes (Other)
  Sender: FDA-Public Use
  Company Number: 2250051-2004-00019

PATIENT
  Sex: Female

DRUGS (2)
  1. RHOGAM [Suspect]
     Dosage: 300 UG / ANTENATAL
     Dates: start: 20010209
  2. RHOGAM [Suspect]
     Dosage: 300 UG / POSTPARTUML
     Dates: start: 20010406

REACTIONS (1)
  - ADULT T-CELL LYMPHOMA/LEUKAEMIA [None]
